FAERS Safety Report 12810169 (Version 1)
Quarter: 2016Q4

REPORT INFORMATION
  Report Type: Spontaneous
  Country: FR (occurrence: FR)
  Receive Date: 20161005
  Receipt Date: 20161005
  Transmission Date: 20170207
  Serious: Yes (Other)
  Sender: FDA-Public Use
  Company Number: FR-009507513-1609FRA013885

PATIENT
  Age: 69 Year
  Sex: Male

DRUGS (2)
  1. INTELENCE [Suspect]
     Active Substance: ETRAVIRINE
     Dosage: 1 DF, BID
     Route: 048
     Dates: start: 20150901, end: 20160906
  2. ISENTRESS [Suspect]
     Active Substance: RALTEGRAVIR POTASSIUM
     Dosage: 1 DF, BID
     Route: 048
     Dates: start: 20150901, end: 20160906

REACTIONS (3)
  - Lipohypertrophy [Unknown]
  - Anxiety [Unknown]
  - Sleep disorder [Unknown]

NARRATIVE: CASE EVENT DATE: 201509
